FAERS Safety Report 22309890 (Version 1)
Quarter: 2023Q2

REPORT INFORMATION
  Report Type: Spontaneous
  Country: US (occurrence: US)
  Receive Date: 20230511
  Receipt Date: 20230511
  Transmission Date: 20230722
  Serious: Yes (Other)
  Sender: FDA-Public Use
  Company Number: US-AMGEN-USASP2023076910

PATIENT
  Sex: Male

DRUGS (9)
  1. RITUXIMAB [Suspect]
     Active Substance: RITUXIMAB
     Indication: Toxic epidermal necrolysis
     Dosage: 375 MILLIGRAM/SQ. METER
     Route: 065
  2. RITUXIMAB [Suspect]
     Active Substance: RITUXIMAB
     Indication: Cutaneous T-cell lymphoma stage IV
  3. RITUXIMAB [Suspect]
     Active Substance: RITUXIMAB
     Indication: Dermatitis bullous
  4. DEXAMETHASONE [Concomitant]
     Active Substance: DEXAMETHASONE
     Indication: Dermatitis bullous
     Dosage: 40 MILLIGRAM, QD
     Route: 042
  5. DEXAMETHASONE [Concomitant]
     Active Substance: DEXAMETHASONE
     Indication: Cutaneous T-cell lymphoma stage IV
  6. DEXAMETHASONE [Concomitant]
     Active Substance: DEXAMETHASONE
     Indication: Toxic epidermal necrolysis
  7. Immunoglobulin [Concomitant]
     Indication: Dermatitis bullous
     Dosage: 1 MILLIGRAM/KILOGRAM  (2 DOSES)
     Route: 042
  8. Immunoglobulin [Concomitant]
     Indication: Cutaneous T-cell lymphoma stage IV
  9. Immunoglobulin [Concomitant]
     Indication: Toxic epidermal necrolysis

REACTIONS (1)
  - Infection [Unknown]
